FAERS Safety Report 13468660 (Version 2)
Quarter: 2017Q2

REPORT INFORMATION
  Report Type: Spontaneous
  Country: JP (occurrence: JP)
  Receive Date: 20170421
  Receipt Date: 20170519
  Transmission Date: 20170830
  Serious: Yes (Death)
  Sender: FDA-Public Use
  Company Number: JP-SEATTLE GENETICS-2017SGN01012

PATIENT
  Age: 7 Decade
  Sex: Male

DRUGS (1)
  1. ADCETRIS [Suspect]
     Active Substance: BRENTUXIMAB VEDOTIN
     Indication: HODGKIN^S DISEASE
     Dosage: UNK
     Route: 041
     Dates: start: 20170202, end: 20170202

REACTIONS (1)
  - Liver disorder [Fatal]

NARRATIVE: CASE EVENT DATE: 201702
